FAERS Safety Report 7660542-2 (Version None)
Quarter: 2011Q3

REPORT INFORMATION
  Report Type: 
  Country: None (occurrence: None)
  Receive Date: 20110805
  Receipt Date: 20110727
  Transmission Date: 20111222
  Serious: Yes (Hospitalization, Other)
  Sender: FDA-Public Use
  Company Number: US-ASTRAZENECA-2011SE40056

PATIENT
  Age: 65 Year
  Sex: Female

DRUGS (2)
  1. PREDNISONE [Concomitant]
  2. NEXIUM [Suspect]
     Route: 048

REACTIONS (8)
  - TONGUE BITING [None]
  - EYE MOVEMENT DISORDER [None]
  - ASTHENIA [None]
  - MUSCLE SPASMS [None]
  - TRISMUS [None]
  - SWOLLEN TONGUE [None]
  - MUSCULAR WEAKNESS [None]
  - FALL [None]
